FAERS Safety Report 5192441-2 (Version None)
Quarter: 2006Q4

REPORT INFORMATION
  Report Type: 
  Country: None (occurrence: None)
  Receive Date: 20061220
  Receipt Date: 20061208
  Transmission Date: 20070319
  Serious: Yes (Hospitalization, Other)
  Sender: FDA-Public Use
  Company Number: 2006152405

PATIENT
  Age: 51 Year
  Sex: Male
  Weight: 139 kg

DRUGS (5)
  1. CHANTIX [Suspect]
     Indication: SMOKING CESSATION THERAPY
     Dosage: 4 MG (2 MG, 2 IN 1 D)
     Dates: start: 20061130
  2. ARICEPT [Suspect]
     Dosage: (5 MG, 1 D)
  3. BUPROPION HCL [Suspect]
     Indication: SMOKING CESSATION THERAPY
     Dosage: 300 MG (150 MG, 2 IN 1D)
     Dates: start: 20061203
  4. RISPERDAL [Suspect]
     Dates: start: 20061130
  5. DIGOXIN [Concomitant]

REACTIONS (2)
  - CHRONIC OBSTRUCTIVE PULMONARY DISEASE [None]
  - CONVULSION [None]
